FAERS Safety Report 6646457-7 (Version None)
Quarter: 2010Q1

REPORT INFORMATION
  Report Type: 
  Country: None (occurrence: None)
  Receive Date: 20100322
  Receipt Date: 20100322
  Transmission Date: 20100710
  Serious: Yes (Hospitalization)
  Sender: FDA-Public Use
  Company Number: None

PATIENT
  Age: 84 Year
  Sex: Female

DRUGS (1)
  1. PHENOBARBITOL 30 MG TABLET VINTAGE PHARMACEUTICALS [Suspect]
     Indication: CONVULSION
     Dosage: 30 MG AM 60 MG PM BID PO
     Route: 048
     Dates: start: 20010101

REACTIONS (3)
  - ANTICONVULSANT DRUG LEVEL ABNORMAL [None]
  - DEHYDRATION [None]
  - LETHARGY [None]
